FAERS Safety Report 5131109-5 (Version None)
Quarter: 2006Q3

REPORT INFORMATION
  Report Type: 
  Country: None (occurrence: None)
  Receive Date: 20060825
  Receipt Date: 20060106
  Transmission Date: 20061208
  Serious: Yes (Other)
  Sender: FDA-Public Use
  Company Number: 2006005618

PATIENT
  Age: 45 Year
  Sex: Female
  Weight: 55.3388 kg

DRUGS (2)
  1. VFEND [Suspect]
     Indication: ASPERGILLOMA
     Dates: start: 20050101, end: 20051201
  2. CYCLOSPORINE [Concomitant]

REACTIONS (4)
  - HALLUCINATION [None]
  - HEADACHE [None]
  - NAUSEA [None]
  - PHOTOPHOBIA [None]
